FAERS Safety Report 16924096 (Version 6)
Quarter: 2025Q4

REPORT INFORMATION
  Report Type: Report from Study
  Country: US (occurrence: US)
  Receive Date: 20191016
  Receipt Date: 20251223
  Transmission Date: 20260117
  Serious: Yes (Other)
  Sender: PFIZER
  Company Number: US-PFIZER INC-2019438456

PATIENT
  Age: 40 Year
  Sex: Male
  Weight: 131.54 kg

DRUGS (8)
  1. SOMATROPIN [Suspect]
     Active Substance: SOMATROPIN
     Indication: Enzyme supplementation
     Dosage: 0.25 MG, EVERY MORNING
     Dates: start: 2019
  2. SOMATROPIN [Suspect]
     Active Substance: SOMATROPIN
     Indication: Hypopituitarism
     Dosage: 0.2 ML, DAILY
     Route: 058
  3. SOMATROPIN [Suspect]
     Active Substance: SOMATROPIN
     Indication: Pituitary tumour benign
     Dosage: 0.25 ML, DAILY
     Route: 058
  4. SOMATROPIN [Suspect]
     Active Substance: SOMATROPIN
     Indication: Adrenal insufficiency
     Dosage: 0.4 MG, NIGHTLY, 7 DAYS/WEEK
     Route: 058
  5. SOMATROPIN [Suspect]
     Active Substance: SOMATROPIN
     Indication: Growth hormone deficiency
  6. CORTEF [Concomitant]
     Active Substance: HYDROCORTISONE
     Dosage: 15 MG IN THE AM, 5 MG AT 1300, 5 MG AT 1800
     Dates: start: 20230802
  7. TESTOSTERONE [Concomitant]
     Active Substance: TESTOSTERONE
     Dosage: 0.5 ML (100 MG), WEEKLY
     Route: 058
     Dates: start: 20190410
  8. TESTOSTERONE [Concomitant]
     Active Substance: TESTOSTERONE
     Dosage: 0.5 ML (100 MG), WEEKLY
     Route: 030
     Dates: start: 20251121

REACTIONS (4)
  - Arthropathy [Unknown]
  - Thyroxine decreased [Unknown]
  - Blood cholesterol increased [Unknown]
  - Low density lipoprotein increased [Unknown]

NARRATIVE: CASE EVENT DATE: 20251114
